FAERS Safety Report 25188706 (Version 1)
Quarter: 2025Q2

REPORT INFORMATION
  Report Type: Spontaneous
  Country: US (occurrence: US)
  Receive Date: 20250411
  Receipt Date: 20250411
  Transmission Date: 20250717
  Serious: Yes (Hospitalization)
  Sender: Unknown Manufacturer
  Company Number: US-MLMSERVICE-20250401-PI460617-00052-2

PATIENT
  Age: 8 Decade
  Sex: Female

DRUGS (1)
  1. AMOXICILLIN [Suspect]
     Active Substance: AMOXICILLIN
     Indication: Dental care
     Dates: start: 2022

REACTIONS (2)
  - Encephalitis [Recovered/Resolved]
  - Meningitis aseptic [Recovered/Resolved]

NARRATIVE: CASE EVENT DATE: 20220101
